FAERS Safety Report 18362501 (Version 1)
Quarter: 2020Q4

REPORT INFORMATION
  Report Type: Spontaneous
  Country: CN (occurrence: CN)
  Receive Date: 20201008
  Receipt Date: 20201008
  Transmission Date: 20210114
  Serious: Yes (Life-Threatening, Hospitalization, Other)
  Sender: FDA-Public Use
  Company Number: CN-PFIZER INC-2020383595

PATIENT
  Age: 57 Year
  Sex: Male
  Weight: 77 kg

DRUGS (3)
  1. CELEBREX [Suspect]
     Active Substance: CELECOXIB
     Indication: ANALGESIC THERAPY
     Dosage: 0.2 G, 1X/DAY
     Route: 048
     Dates: start: 20200911, end: 20200916
  2. BAYASPIRIN [Suspect]
     Active Substance: ASPIRIN
     Indication: ANTIPLATELET THERAPY
     Dosage: 0.1 G, 1X/DAY
     Route: 048
     Dates: start: 20200901, end: 20200916
  3. CELEBREX [Suspect]
     Active Substance: CELECOXIB
     Indication: GOUT

REACTIONS (3)
  - Duodenal ulcer haemorrhage [Recovering/Resolving]
  - Renal failure [Recovering/Resolving]
  - Hyperkalaemia [Unknown]

NARRATIVE: CASE EVENT DATE: 20200916
